FAERS Safety Report 10258435 (Version 1)
Quarter: 2014Q2

REPORT INFORMATION
  Report Type: Spontaneous
  Country: MY (occurrence: None)
  Receive Date: 20140624
  Receipt Date: 20140624
  Transmission Date: 20141212
  Serious: Yes (Death, Life-Threatening, Hospitalization)
  Sender: FDA-Public Use
  Company Number: None

PATIENT
  Age: 83 Year
  Sex: Male
  Weight: 60 kg

DRUGS (1)
  1. TARCEVA [Suspect]
     Indication: LUNG NEOPLASM MALIGNANT
     Dosage: 1 TABLET DAILY ONCE DAILY TAKEN BY MOUTH
     Route: 048

REACTIONS (4)
  - Pneumonia [None]
  - Pneumonia aspiration [None]
  - Acute respiratory distress syndrome [None]
  - Post procedural complication [None]
